FAERS Safety Report 10142802 (Version 4)
Quarter: 2014Q3

REPORT INFORMATION
  Report Type: Spontaneous
  Country: BR (occurrence: None)
  Receive Date: 20140428
  Receipt Date: 20140801
  Transmission Date: 20150326
  Serious: Yes (Hospitalization, Other)
  Sender: FDA-Public Use
  Company Number: AUR-APL-2014-04987

PATIENT
  Age: 51 Year
  Sex: Male

DRUGS (8)
  1. METFORMIN [Suspect]
     Active Substance: METFORMIN HYDROCHLORIDE
     Indication: DIABETES MELLITUS
     Route: 048
     Dates: start: 1998
  2. DIOVAN HCT [Suspect]
     Active Substance: HYDROCHLOROTHIAZIDE\VALSARTAN
     Indication: HYPERTENSION
     Route: 048
     Dates: start: 1998, end: 2011
  3. LOZEPREL [Suspect]
     Active Substance: OMEPRAZOLE
     Indication: ABDOMINAL PAIN UPPER
     Route: 048
  4. LIPANON (FENOFIBRATE) [Concomitant]
  5. ANGIPRESS CD [Suspect]
     Active Substance: ATENOLOL\CHLORTHALIDONE
     Indication: HYPERTENSION
     Route: 048
     Dates: start: 2012
  6. INSULIN (INSULIN) [Concomitant]
     Active Substance: INSULIN NOS
  7. ASPIRIN (ACEYLSALICYLIC ACID) [Concomitant]
  8. ATACAND [Suspect]
     Active Substance: CANDESARTAN CILEXETIL
     Indication: HYPERTENSION
     Dosage: 1 D
     Route: 048
     Dates: start: 2011, end: 20140403

REACTIONS (4)
  - Drug ineffective [None]
  - Blood pressure inadequately controlled [None]
  - Blood triglycerides increased [None]
  - Renal artery occlusion [None]

NARRATIVE: CASE EVENT DATE: 1998
